FAERS Safety Report 10580199 (Version 1)
Quarter: 2014Q4

REPORT INFORMATION
  Report Type: Spontaneous
  Country: FR (occurrence: FR)
  Receive Date: 20141112
  Receipt Date: 20141112
  Transmission Date: 20150529
  Serious: Yes (Other)
  Sender: FDA-Public Use
  Company Number: FR-ALLERGAN-1423307US

PATIENT
  Age: 72 Year
  Sex: Female

DRUGS (1)
  1. GANFORT [Suspect]
     Active Substance: BIMATOPROST\TIMOLOL
     Indication: GLAUCOMA
     Dosage: 1 DROP IN EACH EYE, SINGLE
     Route: 047
     Dates: start: 20141031, end: 20141031

REACTIONS (6)
  - Dyspnoea [Recovered/Resolved]
  - Ocular discomfort [Recovered/Resolved]
  - Eyelid dermatochalasis [Recovered/Resolved]
  - Cough [Recovered/Resolved]
  - Eyelids pruritus [Recovered/Resolved]
  - Vision blurred [Recovered/Resolved]

NARRATIVE: CASE EVENT DATE: 20141031
